FAERS Safety Report 6613462-6 (Version None)
Quarter: 2010Q1

REPORT INFORMATION
  Report Type: 
  Country: None (occurrence: None)
  Receive Date: 20100225
  Receipt Date: 20100217
  Transmission Date: 20100710
  Serious: Yes (Disabling)
  Sender: FDA-Public Use
  Company Number: 09-001722

PATIENT
  Age: 80 Year
  Sex: Male

DRUGS (1)
  1. TACLONEX [Suspect]
     Indication: HYPERKERATOSIS
     Dosage: TOPICAL
     Route: 061
     Dates: start: 20090101

REACTIONS (3)
  - ABASIA [None]
  - APPLICATION SITE BURN [None]
  - OFF LABEL USE [None]
